FAERS Safety Report 5832737-1 (Version None)
Quarter: 2008Q3

REPORT INFORMATION
  Report Type: 
  Country: None (occurrence: None)
  Receive Date: 20080804
  Receipt Date: 20080729
  Transmission Date: 20090109
  Serious: Yes (Life-Threatening)
  Sender: FDA-Public Use
  Company Number: PHHY2008JP15838

PATIENT
  Age: 72 Year
  Sex: Male

DRUGS (9)
  1. LAMISIL [Suspect]
     Dosage: 125 MG DAILY
     Route: 048
     Dates: start: 20080521, end: 20080610
  2. ALDACTONE [Concomitant]
     Dosage: 25 MG, UNK
     Route: 048
     Dates: start: 20071208
  3. GLIMICRON [Concomitant]
     Dosage: 40 MG, UNK
     Route: 048
     Dates: start: 20071208
  4. MICARDIS [Concomitant]
     Dosage: 40 MG, UNK
     Route: 048
     Dates: start: 20071208
  5. BAYASPIRIN [Concomitant]
     Dosage: 100 MG, UNK
     Route: 048
     Dates: start: 20071208
  6. MUCOSAL [Concomitant]
     Dosage: 1 DF, UNK
     Route: 048
     Dates: start: 20071208
  7. SELBEX [Concomitant]
     Dosage: 2 DF, UNK
     Route: 048
     Dates: start: 20071208
  8. MYONAL [Concomitant]
     Dosage: 2 DF, UNK
     Route: 048
     Dates: start: 20071208
  9. CYANOCOBALAMIN [Concomitant]
     Dosage: 2 DF, UNK
     Route: 048
     Dates: start: 20071208

REACTIONS (3)
  - HAEMORRHAGIC DIATHESIS [None]
  - PLATELET COUNT DECREASED [None]
  - PURPURA [None]
